FAERS Safety Report 22680561 (Version 4)
Quarter: 2023Q4

REPORT INFORMATION
  Report Type: Report from Study
  Country: CN (occurrence: CN)
  Receive Date: 20230707
  Receipt Date: 20231102
  Transmission Date: 20240110
  Serious: Yes (Hospitalization)
  Sender: FDA-Public Use
  Company Number: CN-JNJFOC-20230628868

PATIENT
  Age: 37 Year
  Sex: Male
  Weight: 59 kg

DRUGS (27)
  1. AMIVANTAMAB [Suspect]
     Active Substance: AMIVANTAMAB
     Indication: Hepatocellular carcinoma
     Route: 042
     Dates: start: 20230516, end: 20230606
  2. ENTECAVIR [Concomitant]
     Active Substance: ENTECAVIR
     Indication: Chronic hepatitis B
     Route: 048
     Dates: start: 20220920
  3. BICYCLOL [Concomitant]
     Active Substance: BICYCLOL
     Indication: Aspartate aminotransferase increased
     Route: 048
     Dates: start: 20230531, end: 20230703
  4. PHOSPHOLIPID [Concomitant]
     Active Substance: PHOSPHOLIPID
     Indication: Aspartate aminotransferase increased
     Route: 048
     Dates: start: 20230531
  5. AMMONIUM GLYCYRRHIZATE\CYSTEINE HYDROCHLORIDE\GLYCINE [Concomitant]
     Active Substance: AMMONIUM GLYCYRRHIZATE\CYSTEINE HYDROCHLORIDE\GLYCINE
     Indication: Aspartate aminotransferase increased
     Route: 042
     Dates: start: 20230531, end: 20230531
  6. AMMONIUM GLYCYRRHIZATE\CYSTEINE HYDROCHLORIDE\GLYCINE [Concomitant]
     Active Substance: AMMONIUM GLYCYRRHIZATE\CYSTEINE HYDROCHLORIDE\GLYCINE
     Route: 042
     Dates: start: 20230606, end: 20230606
  7. TIOPRONIN SODIUM [Concomitant]
     Indication: Aspartate aminotransferase increased
     Route: 042
     Dates: start: 20230531, end: 20230531
  8. TIOPRONIN SODIUM [Concomitant]
     Route: 042
     Dates: start: 20230606, end: 20230606
  9. GRANULOCYTE COLONY-STIMULATING FACTOR NOS [Concomitant]
     Active Substance: GRANULOCYTE COLONY-STIMULATING FACTOR NOS
     Indication: Prophylaxis
     Route: 042
     Dates: start: 20230613, end: 20230613
  10. ESOMEPRAZOLE SODIUM [Concomitant]
     Active Substance: ESOMEPRAZOLE SODIUM
     Indication: Gastrointestinal disorder therapy
     Route: 042
     Dates: start: 20230613, end: 20230619
  11. LEVOFLOXACIN [Concomitant]
     Active Substance: LEVOFLOXACIN
     Indication: Anti-infective therapy
     Route: 042
     Dates: start: 20230613, end: 20230619
  12. MAGNESIUM ISOGLYCYRRHIZINATE [Concomitant]
     Active Substance: MAGNESIUM ISOGLYCYRRHIZINATE
     Indication: Prophylaxis
     Route: 042
     Dates: start: 20230613, end: 20230619
  13. REDUCED GLUTATHIONE [Concomitant]
     Indication: Prophylaxis
     Route: 042
     Dates: start: 20230613, end: 20230619
  14. CELECOXIB [Concomitant]
     Active Substance: CELECOXIB
     Indication: Gingival swelling
     Route: 048
     Dates: start: 20230615
  15. ADEMETIONINE BUTANEDISULFONATE [Concomitant]
     Active Substance: ADEMETIONINE BUTANEDISULFONATE
     Indication: Aspartate aminotransferase increased
     Route: 042
     Dates: start: 20230703, end: 20230710
  16. ALBUMIN HUMAN [Concomitant]
     Active Substance: ALBUMIN HUMAN
     Indication: Hypoproteinaemia
     Route: 042
     Dates: start: 20230703, end: 20230710
  17. ALBUMIN HUMAN [Concomitant]
     Active Substance: ALBUMIN HUMAN
     Indication: Hypoalbuminaemia
  18. PANTOPRAZOLE SODIUM ANHYDROUS [Concomitant]
     Active Substance: PANTOPRAZOLE SODIUM ANHYDROUS
     Indication: Prophylaxis
     Route: 042
     Dates: start: 20230703, end: 20230710
  19. DIETARY SUPPLEMENT\HERBALS\MILK THISTLE [Concomitant]
     Active Substance: MILK THISTLE
     Indication: Aspartate aminotransferase increased
     Dosage: 0.14 DOSAGE FORMS
     Route: 048
     Dates: start: 20230704
  20. TOLVAPTAN [Concomitant]
     Active Substance: TOLVAPTAN
     Indication: Hyponatraemia
     Route: 048
     Dates: start: 20230704
  21. FLURBIPROFEN AXETIL [Concomitant]
     Active Substance: FLURBIPROFEN AXETIL
     Indication: Prophylaxis
     Route: 042
     Dates: start: 20230707, end: 20230707
  22. MORPHINE HYDROCHLORIDE [Concomitant]
     Active Substance: MORPHINE HYDROCHLORIDE
     Indication: Peritonitis
     Route: 058
     Dates: start: 20230705, end: 20230705
  23. CEFOPERAZONE SODIUM\SULBACTAM [Concomitant]
     Active Substance: CEFOPERAZONE SODIUM\SULBACTAM
     Indication: Peritonitis
     Route: 042
     Dates: start: 20230705, end: 20230710
  24. PREGABALIN [Concomitant]
     Active Substance: PREGABALIN
     Indication: Peritonitis
     Route: 048
     Dates: start: 20230706
  25. OXYCODONE HYDROCHLORIDE [Concomitant]
     Active Substance: OXYCODONE HYDROCHLORIDE
     Indication: Peritonitis
     Route: 048
     Dates: start: 20230707
  26. LIDOCAINE HYDROCHLORIDE [Concomitant]
     Active Substance: DEXTROSE MONOHYDRATE\EPINEPHRINE\EPINEPHRINE BITARTRATE\LIDOCAINE\LIDOCAINE HYDROCHLORIDE\LIDOCAINE
     Indication: Local anaesthesia
     Route: 050
     Dates: start: 20230707, end: 20230707
  27. NETUPITANT\PALONOSETRON HYDROCHLORIDE [Concomitant]
     Active Substance: NETUPITANT\PALONOSETRON HYDROCHLORIDE
     Indication: Prophylaxis
     Route: 048
     Dates: start: 20230707, end: 20230707

REACTIONS (2)
  - Ascites [Not Recovered/Not Resolved]
  - Diarrhoea [Recovered/Resolved]

NARRATIVE: CASE EVENT DATE: 20230607
